FAERS Safety Report 9740083 (Version 1)
Quarter: 2013Q4

REPORT INFORMATION
  Report Type: Spontaneous
  Country: JP (occurrence: JP)
  Receive Date: 20131209
  Receipt Date: 20131209
  Transmission Date: 20140711
  Serious: Yes (Other)
  Sender: FDA-Public Use
  Company Number: JP-VIIV HEALTHCARE LIMITED-B0949183A

PATIENT
  Age: 45 Year
  Sex: Male

DRUGS (16)
  1. EPZICOM [Suspect]
     Indication: HIV INFECTION
     Dosage: 1IUAX PER DAY
     Route: 048
     Dates: start: 20120320, end: 20120323
  2. LOXOPROFEN [Concomitant]
     Route: 048
  3. REBAMIPIDE [Concomitant]
     Route: 048
  4. DOMPERIDONE [Concomitant]
     Route: 048
  5. ISCOTIN [Concomitant]
     Route: 048
  6. MYCOBUTIN [Concomitant]
     Route: 048
  7. PYDOXAL [Concomitant]
     Route: 048
  8. PROPIVERINE HYDROCHLORIDE [Concomitant]
     Route: 048
  9. TAMSULOSIN HYDROCHLORIDE [Concomitant]
     Route: 048
  10. FLIVAS [Concomitant]
     Route: 048
  11. PREZISTA NAIVE [Concomitant]
     Route: 048
  12. NORVIR [Concomitant]
     Route: 048
  13. CELECOX [Concomitant]
     Route: 048
  14. CETIRIZINE HYDROCHLORIDE [Concomitant]
     Route: 048
  15. VALIXA [Concomitant]
     Route: 048
  16. FLUCONAZOLE [Concomitant]
     Route: 048

REACTIONS (3)
  - Pyrexia [Recovered/Resolved]
  - Pneumonia [Recovering/Resolving]
  - Respiratory failure [Recovering/Resolving]
